FAERS Safety Report 16385137 (Version 1)
Quarter: 2019Q2

REPORT INFORMATION
  Report Type: Spontaneous
  Country: US (occurrence: US)
  Receive Date: 20190603
  Receipt Date: 20190603
  Transmission Date: 20190711
  Serious: Yes (Other)
  Sender: FDA-Public Use
  Company Number: US-SLATE RUN PHARMACEUTICALS-SLTR-AE-19-41

PATIENT
  Age: 18 Month
  Sex: Male

DRUGS (7)
  1. SIROLIMUS. [Concomitant]
     Active Substance: SIROLIMUS
     Indication: IMMUNOSUPPRESSION
  2. ANTIBIOTICS [Concomitant]
     Active Substance: UNSPECIFIED INGREDIENT
  3. RITUXIMAB. [Concomitant]
     Active Substance: RITUXIMAB
     Indication: VIRAL LOAD
  4. IMMUNE GLOBULIN IV [Concomitant]
     Active Substance: HUMAN IMMUNOGLOBULIN G
     Route: 042
  5. BORTEZOMIB. [Concomitant]
     Active Substance: BORTEZOMIB
  6. 70436-089-55 GANCICLOVIR FOR INJECTION DRY VIAL USP 500 MG [Suspect]
     Active Substance: GANCICLOVIR SODIUM
     Indication: CYTOMEGALOVIRUS CHORIORETINITIS
  7. DEXAMETHASONE. [Concomitant]
     Active Substance: DEXAMETHASONE

REACTIONS (10)
  - Enterobacter infection [Fatal]
  - Post procedural haemorrhage [Fatal]
  - Tracheitis [Fatal]
  - Klebsiella infection [Fatal]
  - Escherichia urinary tract infection [Fatal]
  - Shock [Fatal]
  - Ileal perforation [Fatal]
  - Post transplant lymphoproliferative disorder [Fatal]
  - Pancytopenia [Fatal]
  - Multiple organ dysfunction syndrome [Fatal]
